FAERS Safety Report 6936319-X (Version None)
Quarter: 2010Q3

REPORT INFORMATION
  Report Type: 
  Country: None (occurrence: None)
  Receive Date: 20100823
  Receipt Date: 20100813
  Transmission Date: 20110219
  Serious: Yes (Hospitalization)
  Sender: FDA-Public Use
  Company Number: GB-PFIZER INC-2009210069

PATIENT
  Sex: Male
  Weight: 72.6 kg

DRUGS (6)
  1. ERLOTINIB HYDROCHLORIDE [Suspect]
     Indication: NON-SMALL CELL LUNG CANCER METASTATIC
     Dosage: 150 MG, 1X/DAY
     Route: 048
     Dates: start: 20090112, end: 20090506
  2. SUNITINIB MALATE [Suspect]
     Indication: NON-SMALL CELL LUNG CANCER METASTATIC
     Dosage: UNK MG, 1X/DAY
     Route: 048
     Dates: start: 20090112, end: 20090506
  3. ACETYLSALICYLIC ACID [Concomitant]
     Route: 048
  4. PRAVASTATIN [Concomitant]
     Dosage: UNK
     Route: 048
     Dates: end: 20090507
  5. SERETIDE [Concomitant]
     Route: 055
  6. VENTOLIN [Concomitant]
     Route: 055

REACTIONS (1)
  - LETHARGY [None]
